APPROVED DRUG PRODUCT: INVEGA TRINZA
Active Ingredient: PALIPERIDONE PALMITATE
Strength: 273MG/0.875ML (273MG/0.875ML)
Dosage Form/Route: SUSPENSION, EXTENDED RELEASE;INTRAMUSCULAR
Application: N207946 | Product #001
Applicant: JANSSEN PHARMACEUTICALS INC
Approved: May 18, 2015 | RLD: Yes | RS: Yes | Type: RX

PATENTS:
Patent 10143693 | Expires: Apr 5, 2036
Patent 10143693 | Expires: Apr 5, 2036